FAERS Safety Report 4576212-3 (Version None)
Quarter: 2005Q1

REPORT INFORMATION
  Report Type: 
  Country: None (occurrence: None)
  Receive Date: 20050119
  Receipt Date: 20041020
  Transmission Date: 20050727
  Serious: Yes (Hospitalization)
  Sender: FDA-Public Use
  Company Number: A03200403530

PATIENT
  Age: 67 Year
  Sex: Female
  Weight: 87.9978 kg

DRUGS (10)
  1. PLAVIX [Suspect]
     Indication: CARDIOVASCULAR DISORDER
     Dosage: 75 MG QD - ORAL
     Route: 048
  2. ASPIRIN [Suspect]
     Indication: CARDIOVASCULAR DISORDER
     Dosage: 81 MG QD - ORAL; A FEW YEARS
     Route: 048
     Dates: end: 20040401
  3. ASPIRIN [Suspect]
     Indication: CARDIOVASCULAR DISORDER
     Dosage: 325 MG QD - ORAL
     Route: 048
     Dates: start: 20040401
  4. LABETALOL HCL [Concomitant]
  5. ROSUVASTATIN CALCIUM [Concomitant]
  6. VALSARTAN [Concomitant]
  7. FUROSEMIDE [Concomitant]
  8. ISOSORBIDE MONONITRATE [Concomitant]
  9. IRON [Concomitant]
  10. VITAMINS NOS [Suspect]

REACTIONS (2)
  - CEREBROVASCULAR ACCIDENT [None]
  - CONTUSION [None]
